FAERS Safety Report 4482221-5 (Version None)
Quarter: 2004Q4

REPORT INFORMATION
  Report Type: 
  Country: None (occurrence: None)
  Receive Date: 20041019
  Receipt Date: 20041019
  Transmission Date: 20050328
  Serious: Yes (Hospitalization)
  Sender: FDA-Public Use
  Company Number: None

PATIENT
  Sex: Male

DRUGS (11)
  1. IBUPROFEN [Suspect]
     Indication: PAIN
     Dosage: 400 MG TID PRN ORAL
     Route: 048
  2. WARFARIN 5 MG [Suspect]
     Indication: DEEP VEIN THROMBOSIS
     Dosage: 7.5MG/5MG MW, OTHER DAYS ORAL
     Route: 048
  3. FERROUS SULFATE TAB [Concomitant]
  4. MORPHINE [Concomitant]
  5. SENNA [Concomitant]
  6. RANITIDINE [Concomitant]
  7. DOCUSATE [Concomitant]
  8. DESIPRAMINE HCL [Concomitant]
  9. PROCHLORPERAZINE [Concomitant]
  10. AMOXICILLIN [Concomitant]
  11. ENSURE [Concomitant]

REACTIONS (4)
  - ASTHENIA [None]
  - HAEMATOCRIT DECREASED [None]
  - HAEMOGLOBIN DECREASED [None]
  - INTERNATIONAL NORMALISED RATIO INCREASED [None]
